FAERS Safety Report 26122109 (Version 1)
Quarter: 2025Q4

REPORT INFORMATION
  Report Type: Spontaneous
  Country: US (occurrence: None)
  Receive Date: 20251204
  Receipt Date: 20251204
  Transmission Date: 20260118
  Serious: Yes (Hospitalization, Other)
  Sender: FDA-CTU
  Company Number: None

PATIENT
  Age: 53 Year
  Sex: Female

DRUGS (5)
  1. KETOROLAC TROMETHAMINE [Suspect]
     Active Substance: KETOROLAC TROMETHAMINE
     Indication: Back pain
     Dosage: 1 INJECTION(S) INTRAMUSCULAR
     Route: 030
     Dates: start: 20251117, end: 20251117
  2. OLMESARTAN [Concomitant]
     Active Substance: OLMESARTAN
  3. ESTRADIOL [Concomitant]
     Active Substance: ESTRADIOL
  4. PROGESTERONE [Concomitant]
     Active Substance: PROGESTERONE
  5. VITAMIN D3 [Concomitant]
     Active Substance: CHOLECALCIFEROL

REACTIONS (13)
  - Dizziness [None]
  - Paraesthesia [None]
  - Hypoaesthesia [None]
  - Limb discomfort [None]
  - Hyperhidrosis [None]
  - Tachycardia [None]
  - Muscle disorder [None]
  - Muscle tone disorder [None]
  - Speech disorder [None]
  - Communication disorder [None]
  - Hypotension [None]
  - Disorientation [None]
  - Near death experience [None]

NARRATIVE: CASE EVENT DATE: 20251117
